FAERS Safety Report 9934227 (Version 3)
Quarter: 2014Q1

REPORT INFORMATION
  Report Type: Report from Study
  Country: SE (occurrence: SE)
  Receive Date: 20140228
  Receipt Date: 20140313
  Transmission Date: 20141002
  Serious: Yes (Hospitalization, Other)
  Sender: FDA-Public Use
  Company Number: SE-VERTEX PHARMACEUTICALS INC-2013-011268

PATIENT
  Age: 23 Year
  Sex: Female
  Weight: 62 kg

DRUGS (33)
  1. VX-809 FDC [Suspect]
     Indication: CYSTIC FIBROSIS
     Dosage: 400 MG, BID
     Route: 048
     Dates: start: 20130801, end: 20131115
  2. VX-809 FDC [Suspect]
     Dosage: 400 MG, BID
     Route: 048
     Dates: start: 20131118, end: 20131216
  3. VX-770 FDC [Suspect]
     Indication: CYSTIC FIBROSIS
     Dosage: 250 MG, BID
     Route: 048
     Dates: start: 20130801, end: 20131115
  4. VX-770 FDC [Suspect]
     Dosage: 250 MG, BID
     Route: 048
     Dates: start: 20131118, end: 20131216
  5. KEPPRA [Suspect]
     Indication: CONVULSION
     Dosage: 250 MG, BID
     Dates: start: 20131116, end: 20140113
  6. KEPPRA [Suspect]
     Indication: MUSCLE SPASMS
     Dosage: 500 MG, BID
     Dates: start: 20140114
  7. AZITHROMYCIN [Suspect]
     Indication: CYSTIC FIBROSIS
     Dosage: 500 MG, 2X/WEEK
     Dates: start: 20070730
  8. AZITHROMYCIN [Suspect]
     Indication: ANTIBIOTIC THERAPY
  9. AZITHROMYCIN [Suspect]
     Indication: ANTIINFLAMMATORY THERAPY
  10. CARBAMAZEPINE [Concomitant]
     Indication: CONVULSION
     Dosage: 200 MG, BID
     Dates: start: 2002, end: 201301
  11. CARBAMAZEPINE [Concomitant]
     Dosage: UNK
     Dates: start: 201301, end: 20130708
  12. BROMHEXIN [Concomitant]
     Indication: CYSTIC FIBROSIS
     Dosage: 16 MG, TID
     Route: 048
     Dates: start: 19901009
  13. ACETYLCYSTEIN [Concomitant]
     Indication: CYSTIC FIBROSIS
     Dosage: 400 MG, TID
     Route: 048
     Dates: start: 19990101
  14. SALBUTAMOL [Concomitant]
     Indication: CYSTIC FIBROSIS
     Dosage: 2 MG, TID
     Route: 048
     Dates: start: 19990101
  15. SALBUTAMOL [Concomitant]
     Indication: ASTHMA
  16. FLUTICASONE PROPIONATE W/SALMETEROL [Concomitant]
     Indication: CYSTIC FIBROSIS
     Dosage: 50/150 ?G, BID
     Route: 055
     Dates: start: 20000101
  17. FLUTICASONE PROPIONATE W/SALMETEROL [Concomitant]
     Indication: ASTHMA
  18. SALBUTAMOL [Concomitant]
     Indication: CYSTIC FIBROSIS
     Dosage: 0.2 MG, BID
     Route: 055
     Dates: start: 19990101
  19. SALBUTAMOL [Concomitant]
     Indication: ASTHMA
  20. HYPERTONIC SALINE SOLUTION [Concomitant]
     Indication: CYSTIC FIBROSIS
     Dosage: UNK
     Dates: start: 20101202
  21. CREON [Concomitant]
     Indication: CYSTIC FIBROSIS PANCREATIC
     Dosage: UNK, PRN
     Route: 048
     Dates: start: 19901009
  22. VITAMIN E [Concomitant]
     Indication: VITAMIN SUPPLEMENTATION
     Dosage: 300 MG, QD
     Route: 048
     Dates: start: 19901009
  23. VITAMIN D [Concomitant]
     Indication: VITAMIN SUPPLEMENTATION
     Dosage: 1600 IE, QD
     Route: 048
     Dates: start: 20130416
  24. MULTIVITAMIN [Concomitant]
     Indication: VITAMIN SUPPLEMENTATION
     Dosage: 1 DF, QD
     Route: 048
     Dates: start: 20120101
  25. OMEGA 3 FORTE [Concomitant]
     Indication: NUTRITIONAL SUPPLEMENTATION
     Dosage: 2 DF, QD
     Route: 048
     Dates: start: 20070730
  26. BETAMETASONA [Concomitant]
     Indication: ASTHMA
     Dosage: 2.5 MG, PRN
     Route: 048
     Dates: start: 20120508
  27. KLEMASTIN [Concomitant]
     Indication: FOOD ALLERGY
     Dosage: UNK, PRN
     Dates: start: 20130911, end: 20130920
  28. INFLUENZA VACCINE [Concomitant]
     Dosage: UNK
     Dates: start: 201310
  29. IPREN [Concomitant]
     Dosage: 4-5 TABLETS SINCE 01 AUG 2013
  30. TADIM [Concomitant]
     Dosage: 1 MILLION IE X 2
     Route: 042
     Dates: start: 20130926, end: 20131007
  31. TOBI [Concomitant]
     Dosage: X2
     Route: 055
     Dates: start: 20130926, end: 20131007
  32. TADIM [Concomitant]
     Indication: INFECTIVE PULMONARY EXACERBATION OF CYSTIC FIBROSIS
     Dosage: UNK UNK, BID
     Route: 055
     Dates: start: 20131122, end: 20131206
  33. IBUPROFEN [Concomitant]
     Indication: INFECTIVE PULMONARY EXACERBATION OF CYSTIC FIBROSIS
     Dosage: UNK
     Dates: start: 20131121, end: 20131123

REACTIONS (4)
  - Alanine aminotransferase increased [Recovering/Resolving]
  - Aspartate aminotransferase increased [Recovering/Resolving]
  - Gamma-glutamyltransferase increased [Recovering/Resolving]
  - Convulsion [Recovered/Resolved]
